FAERS Safety Report 10036417 (Version 1)
Quarter: 2014Q1

REPORT INFORMATION
  Report Type: Report from Study
  Country: US (occurrence: US)
  Receive Date: 20140325
  Receipt Date: 20140325
  Transmission Date: 20141002
  Serious: Yes (Hospitalization)
  Sender: FDA-Public Use
  Company Number: US-US-EMD SERONO, INC.-7277210

PATIENT
  Age: 56 Year
  Sex: Female
  Weight: 61 kg

DRUGS (15)
  1. REBIF [Suspect]
     Indication: MULTIPLE SCLEROSIS
     Route: 058
     Dates: start: 20130322, end: 201401
  2. FLONASE [Concomitant]
     Indication: HEADACHE
  3. LISINOPRIL [Concomitant]
     Indication: HYPERTENSION
  4. TOPROL [Concomitant]
     Indication: HYPERTENSION
  5. ATORVASTATIN [Concomitant]
     Indication: CARDIAC DISORDER
  6. ATORVASTATIN [Concomitant]
     Indication: CHRONIC OBSTRUCTIVE PULMONARY DISEASE
  7. ADVAIR [Concomitant]
     Indication: CARDIAC DISORDER
  8. ADVAIR [Concomitant]
     Indication: CHRONIC OBSTRUCTIVE PULMONARY DISEASE
  9. SPIRIVA [Concomitant]
     Indication: CARDIAC DISORDER
  10. SPIRIVA [Concomitant]
     Indication: CHRONIC OBSTRUCTIVE PULMONARY DISEASE
  11. ALBUTEROL                          /00139501/ [Concomitant]
     Indication: CHRONIC OBSTRUCTIVE PULMONARY DISEASE
  12. ALBUTEROL                          /00139501/ [Concomitant]
     Indication: CHRONIC OBSTRUCTIVE PULMONARY DISEASE
  13. GABAPENTIN [Concomitant]
     Indication: HEADACHE
  14. RANITIDINE [Concomitant]
     Indication: DYSPEPSIA
  15. SPIRONOLACTONE [Concomitant]
     Indication: PERICARDIAL EFFUSION

REACTIONS (5)
  - Myocardial infarction [Recovered/Resolved]
  - Arrhythmia [Recovering/Resolving]
  - Abdominal pain upper [Not Recovered/Not Resolved]
  - Abdominal distension [Not Recovered/Not Resolved]
  - Fatigue [Not Recovered/Not Resolved]
